FAERS Safety Report 21204279 (Version 1)
Quarter: 2022Q3

REPORT INFORMATION
  Report Type: Report from Study
  Country: PL (occurrence: PL)
  Receive Date: 20220812
  Receipt Date: 20220812
  Transmission Date: 20221027
  Serious: Yes (Life-Threatening)
  Sender: FDA-Public Use
  Company Number: PL-TEVA-2018-PL-877274

PATIENT

DRUGS (3)
  1. BENDAMUSTINE [Suspect]
     Active Substance: BENDAMUSTINE
     Indication: Hodgkin^s disease
     Dosage: DAY 1 AND 2, IN 3 WEEK INTERVALS FOR SCHEDULED 4 CYCLES
     Route: 042
  2. GEMCITABINE [Suspect]
     Active Substance: GEMCITABINE
     Indication: Hodgkin^s disease
     Dosage: DAY 1 AND 4, IN 3 WEEK FOR SCHEDULED 4 CYCLES
     Route: 042
  3. DEXAMETHASONE [Suspect]
     Active Substance: DEXAMETHASONE
     Indication: Hodgkin^s disease
     Dosage: 20 TO 40 MG DAILY, DAY 1-4, IN 3 WEEK FOR SCHEDULED 4 CYCLES
     Route: 048

REACTIONS (1)
  - Skin toxicity [Unknown]
